FAERS Safety Report 7298858 (Version 2)
Quarter: 2012Q4

REPORT INFORMATION
  Report Type: 
  Country: CA (occurrence: CA)
  Receive Date: 20100226
  Receipt Date: 20121011
  Transmission Date: 20130627
  Serious: Yes (Death, Hospitalization)
  Sender: FDA-Public Use
  Company Number: CA-PFIZER INC-2010020174

PATIENT
  Age: 45 Year
  Sex: Female
  Weight: 65.2 kg

DRUGS (1)
  1. SUTENT [Suspect]
     Indication: ADENOCARCINOMA OF THE CERVIX
     Dosage: 50 mg, 1x/day, 4 weeks on, 2 weeks off
     Route: 048
     Dates: start: 20071006, end: 20071214

REACTIONS (2)
  - Gastrointestinal fistula [Recovered/Resolved]
  - Vaginal haemorrhage [Fatal]
